FAERS Safety Report 18992482 (Version 1)
Quarter: 2021Q1

REPORT INFORMATION
  Report Type: Spontaneous
  Country: US (occurrence: US)
  Receive Date: 20210310
  Receipt Date: 20210310
  Transmission Date: 20210420
  Serious: Yes (Other)
  Sender: FDA-Public Use
  Company Number: US-ASTRAZENECA-2021A102649

PATIENT
  Age: 21647 Day
  Sex: Female
  Weight: 86.2 kg

DRUGS (48)
  1. PRAVASTATIN. [Concomitant]
     Active Substance: PRAVASTATIN
     Indication: BLOOD CHOLESTEROL INCREASED
     Dates: start: 2007
  2. PEPCID [Concomitant]
     Active Substance: FAMOTIDINE
  3. MELOXICAM. [Concomitant]
     Active Substance: MELOXICAM
  4. PRAVASTATIN. [Concomitant]
     Active Substance: PRAVASTATIN
  5. VALSARTAN. [Concomitant]
     Active Substance: VALSARTAN
  6. RESTASIS [Concomitant]
     Active Substance: CYCLOSPORINE
  7. DOXAZOSIN [Concomitant]
     Active Substance: DOXAZOSIN MESYLATE
  8. PRILOSEC [Suspect]
     Active Substance: OMEPRAZOLE MAGNESIUM
     Indication: GASTROOESOPHAGEAL REFLUX DISEASE
     Dosage: GENERIC
     Route: 065
     Dates: end: 2017
  9. ACETAMINOPHEN. [Concomitant]
     Active Substance: ACETAMINOPHEN
  10. ATORVASTATIN [Concomitant]
     Active Substance: ATORVASTATIN
  11. CLINDAMYCIN. [Concomitant]
     Active Substance: CLINDAMYCIN
  12. EPIDRIN [Concomitant]
     Active Substance: ACETAMINOPHEN\DICHLORALPHENAZONE\ISOMETHEPTENE
  13. CYCLOBENZAPRIN [Concomitant]
     Active Substance: CYCLOBENZAPRINE
  14. ZYLET [Concomitant]
     Active Substance: LOTEPREDNOL ETABONATE\TOBRAMYCIN
  15. METRONIDAZOLE. [Concomitant]
     Active Substance: METRONIDAZOLE
  16. PRILOSEC [Suspect]
     Active Substance: OMEPRAZOLE MAGNESIUM
     Indication: GASTROOESOPHAGEAL REFLUX DISEASE
     Dosage: GENERIC
     Route: 065
     Dates: start: 1992, end: 2017
  17. PROTONIX [Suspect]
     Active Substance: PANTOPRAZOLE SODIUM
     Indication: GASTROOESOPHAGEAL REFLUX DISEASE
     Route: 065
     Dates: start: 2000
  18. TYLENOL [Concomitant]
     Active Substance: ACETAMINOPHEN
     Indication: ARTHRITIS
  19. PROCHLORPER [Concomitant]
  20. LIPITOR [Concomitant]
     Active Substance: ATORVASTATIN CALCIUM
  21. PATADAY [Concomitant]
     Active Substance: OLOPATADINE HYDROCHLORIDE
  22. DICLOFENAC [Concomitant]
     Active Substance: DICLOFENAC
  23. RANITIDINE. [Concomitant]
     Active Substance: RANITIDINE
  24. CELEXA [Concomitant]
     Active Substance: CITALOPRAM HYDROBROMIDE
  25. LEVOTHYROXIN [Concomitant]
     Active Substance: LEVOTHYROXINE
  26. CARISOPRODOL. [Concomitant]
     Active Substance: CARISOPRODOL
  27. CHLORHEX [Concomitant]
     Active Substance: CHLORHEXIDINE GLUCONATE
  28. BISOPROLOL [Concomitant]
     Active Substance: BISOPROLOL
  29. PREVACID [Suspect]
     Active Substance: LANSOPRAZOLE
     Indication: GASTROOESOPHAGEAL REFLUX DISEASE
     Route: 065
     Dates: start: 1995, end: 2017
  30. MULTI?VITAMIN [Concomitant]
     Active Substance: .ALPHA.-TOCOPHEROL ACETATE, DL-\ASCORBIC ACID\CYANOCOBALAMIN\FLUORIDE ION\FOLIC ACID\NIACIN\PYRIDOXINE\RIBOFLAVIN\THIAMINE\VITAMIN A\VITAMIN D
     Indication: ENERGY INCREASED
  31. ZANTAC [Concomitant]
     Active Substance: RANITIDINE HYDROCHLORIDE
  32. VALACICLOVIR [Concomitant]
     Active Substance: VALACYCLOVIR HYDROCHLORIDE
  33. HYDROCODONE [Concomitant]
     Active Substance: HYDROCODONE
  34. CITALOPRAM [Concomitant]
     Active Substance: CITALOPRAM HYDROBROMIDE
  35. PROTONIX [Suspect]
     Active Substance: PANTOPRAZOLE SODIUM
     Indication: GASTROOESOPHAGEAL REFLUX DISEASE
     Route: 065
  36. ATORVASTATIN [Concomitant]
     Active Substance: ATORVASTATIN
     Indication: BLOOD CHOLESTEROL INCREASED
     Dates: start: 2007
  37. FOSAMAX [Concomitant]
     Active Substance: ALENDRONATE SODIUM
  38. DEXAMETHASONE. [Concomitant]
     Active Substance: DEXAMETHASONE
  39. MOBIC [Concomitant]
     Active Substance: MELOXICAM
  40. LOSARTAN. [Concomitant]
     Active Substance: LOSARTAN
     Indication: HYPERTENSION
     Dates: start: 2013
  41. LOVAZA [Concomitant]
     Active Substance: OMEGA-3-ACID ETHYL ESTERS
  42. PRILOSEC [Suspect]
     Active Substance: OMEPRAZOLE MAGNESIUM
     Indication: GASTROOESOPHAGEAL REFLUX DISEASE
     Dosage: GENERIC
     Route: 065
     Dates: start: 20070614
  43. PREVACID [Suspect]
     Active Substance: LANSOPRAZOLE
     Indication: GASTROOESOPHAGEAL REFLUX DISEASE
     Route: 065
  44. BENICAR [Concomitant]
     Active Substance: OLMESARTAN MEDOXOMIL
  45. ALENDRONATE [Concomitant]
     Active Substance: ALENDRONATE SODIUM
  46. NAFTIN [Concomitant]
     Active Substance: NAFTIFINE HYDROCHLORIDE
  47. METOPROLOL. [Concomitant]
     Active Substance: METOPROLOL
  48. MYRBETRIQ [Concomitant]
     Active Substance: MIRABEGRON

REACTIONS (3)
  - Renal failure [Unknown]
  - Gastrooesophageal reflux disease [Not Recovered/Not Resolved]
  - Chronic kidney disease [Not Recovered/Not Resolved]

NARRATIVE: CASE EVENT DATE: 20131119
